FAERS Safety Report 24918172 (Version 2)
Quarter: 2025Q2

REPORT INFORMATION
  Report Type: Spontaneous
  Country: GB (occurrence: GB)
  Receive Date: 20250203
  Receipt Date: 20250402
  Transmission Date: 20250716
  Serious: Yes (Other)
  Sender: PFIZER
  Company Number: GB-PFIZER INC-PV202500012451

PATIENT
  Age: 72 Year
  Sex: Male

DRUGS (1)
  1. BESPONSA [Suspect]
     Active Substance: INOTUZUMAB OZOGAMICIN

REACTIONS (5)
  - Liver function test abnormal [Unknown]
  - Ascites [Unknown]
  - Hepatomegaly [Unknown]
  - Infection [Unknown]
  - Venoocclusive disease [Unknown]
